FAERS Safety Report 12797825 (Version 1)
Quarter: 2016Q3

REPORT INFORMATION
  Report Type: Spontaneous
  Country: TR (occurrence: TR)
  Receive Date: 20160930
  Receipt Date: 20160930
  Transmission Date: 20161109
  Serious: Yes (Other)
  Sender: FDA-Public Use
  Company Number: TR-ASTRAZENECA-2016SF01463

PATIENT
  Age: 38 Year
  Sex: Male

DRUGS (2)
  1. MEROPENEM. [Suspect]
     Active Substance: MEROPENEM
     Dosage: 3 GRAMS  PER DAY
     Route: 042
  2. PETHIDINE [Suspect]
     Active Substance: MEPERIDINE
     Dosage: 50 GRAMS  PER DAY
     Route: 065

REACTIONS (3)
  - Eosinophilic pneumonia [Unknown]
  - Eosinophilic myocarditis [Unknown]
  - Eosinophilia [Unknown]
